FAERS Safety Report 14205977 (Version 1)
Quarter: 2017Q4

REPORT INFORMATION
  Report Type: Report from Study
  Country: US (occurrence: US)
  Receive Date: 20171120
  Receipt Date: 20171120
  Transmission Date: 20180321
  Serious: Yes (Hospitalization, Other)
  Sender: FDA-Public Use
  Company Number: US-ACTELION-A-US2014-109716

PATIENT
  Age: 66 Year
  Sex: Female

DRUGS (4)
  1. WARFARIN [Concomitant]
     Active Substance: WARFARIN
     Dosage: UNK
     Dates: start: 201311, end: 201312
  2. IRON [Concomitant]
     Active Substance: IRON
  3. REVATIO [Concomitant]
     Active Substance: SILDENAFIL CITRATE
     Dosage: UNK
     Dates: start: 201302
  4. TRACLEER [Suspect]
     Active Substance: BOSENTAN
     Indication: PULMONARY ARTERIAL HYPERTENSION
     Dosage: UNK
     Route: 048
     Dates: start: 201302, end: 20170822

REACTIONS (12)
  - Pneumonia [Not Recovered/Not Resolved]
  - Hepatosplenomegaly [Unknown]
  - Atrial fibrillation [Unknown]
  - Anaemia [Unknown]
  - Haemorrhage [Unknown]
  - Renal impairment [Unknown]
  - Hypoxia [Unknown]
  - Haemoglobin decreased [Unknown]
  - Loss of consciousness [Unknown]
  - Antinuclear antibody [Unknown]
  - Haemodialysis [Unknown]
  - Transfusion [Unknown]

NARRATIVE: CASE EVENT DATE: 201311
